FAERS Safety Report 9358959 (Version 2)
Quarter: 2013Q4

REPORT INFORMATION
  Report Type: Spontaneous
  Country: US (occurrence: US)
  Receive Date: 20130620
  Receipt Date: 20131122
  Transmission Date: 20140711
  Serious: Yes (Hospitalization)
  Sender: FDA-Public Use
  Company Number: US-B.I. PHARMACEUTICALS,INC./RIDGEFIELD-2013-BI-17227BP

PATIENT
  Sex: Female
  Weight: 90.72 kg

DRUGS (7)
  1. PRADAXA [Suspect]
     Indication: ATRIAL FIBRILLATION
     Dosage: 300 MG
     Route: 048
     Dates: start: 20120112, end: 20120511
  2. TOPROL XR [Concomitant]
     Dosage: 50 MG
     Route: 048
     Dates: start: 2006
  3. QUINAPRIL [Concomitant]
     Dosage: 20 MG
     Dates: start: 1985
  4. HYDROCHLOROTHIAZIDE [Concomitant]
     Dosage: 25 MG
  5. SYNTHROID [Concomitant]
     Dosage: 75 MCG
     Route: 048
     Dates: start: 1985
  6. TRAMADOL [Concomitant]
     Route: 048
     Dates: start: 2007
  7. XANAX [Concomitant]
     Dosage: 0.5 MG
     Route: 048
     Dates: start: 1985

REACTIONS (2)
  - Gastrointestinal haemorrhage [Unknown]
  - Anaemia [Unknown]
